FAERS Safety Report 8576906-9 (Version None)
Quarter: 2012Q3

REPORT INFORMATION
  Report Type: 
  Country: None (occurrence: None)
  Receive Date: 20120807
  Receipt Date: 20120719
  Transmission Date: 20120928
  Serious: No
  Sender: FDA-Public Use
  Company Number: US-BAYER-2012-072673

PATIENT
  Sex: Female

DRUGS (1)
  1. AVELOX [Suspect]
     Indication: SINUSITIS

REACTIONS (5)
  - INSOMNIA [None]
  - DIZZINESS [None]
  - NIGHTMARE [None]
  - DRY EYE [None]
  - ABDOMINAL PAIN UPPER [None]
